FAERS Safety Report 23586383 (Version 3)
Quarter: 2024Q2

REPORT INFORMATION
  Report Type: Report from Study
  Country: US (occurrence: US)
  Receive Date: 20240301
  Receipt Date: 20240430
  Transmission Date: 20240716
  Serious: Yes (Hospitalization, Other)
  Sender: FDA-Public Use
  Company Number: US-UCBSA-2023034801

PATIENT
  Age: 10 Year
  Sex: Male
  Weight: 26.6 kg

DRUGS (5)
  1. FINTEPLA [Suspect]
     Active Substance: FENFLURAMINE
     Indication: Lennox-Gastaut syndrome
     Dosage: 4 MILLILITER, 2X/DAY (BID), (8.8 MILLIGRAM/DAY)
     Dates: start: 20221109
  2. FINTEPLA [Suspect]
     Active Substance: FENFLURAMINE
     Dosage: 4 MILLILITER, 2X/DAY (BID)
  3. FINTEPLA [Suspect]
     Active Substance: FENFLURAMINE
     Dosage: 4 MILLILITER QAM AND 4.5 MILLILITER QPM
  4. FINTEPLA [Suspect]
     Active Substance: FENFLURAMINE
     Dosage: 4 MILLILITER AM AND 4.5 MILLILITER PM (18.7 MG/DAY)
     Dates: start: 20231030
  5. FINTEPLA [Suspect]
     Active Substance: FENFLURAMINE
     Dosage: 4ML Q AM AND 4.5ML Q PM

REACTIONS (13)
  - Abdominal distension [Not Recovered/Not Resolved]
  - Dehydration [Not Recovered/Not Resolved]
  - Seizure [Not Recovered/Not Resolved]
  - Mitral valve incompetence [Not Recovered/Not Resolved]
  - Tricuspid valve incompetence [Unknown]
  - Pulmonary valve incompetence [Unknown]
  - Vomiting [Not Recovered/Not Resolved]
  - Food intolerance [Not Recovered/Not Resolved]
  - Mitral valve prolapse [Unknown]
  - Aortic dilatation [Unknown]
  - Cardiac septal hypertrophy [Unknown]
  - Off label use [Unknown]
  - Drug ineffective [Unknown]

NARRATIVE: CASE EVENT DATE: 20230518
